FAERS Safety Report 6653979-1 (Version None)
Quarter: 2010Q1

REPORT INFORMATION
  Report Type: 
  Country: None (occurrence: None)
  Receive Date: 20100324
  Receipt Date: 20100317
  Transmission Date: 20100710
  Serious: Yes (Other)
  Sender: FDA-Public Use
  Company Number: 2010SP014447

PATIENT
  Age: 4 Year
  Sex: Male

DRUGS (1)
  1. DESLORATADINE [Suspect]
     Indication: PROPHYLAXIS
     Dosage: PO
     Route: 048

REACTIONS (4)
  - ACTIVATED PARTIAL THROMBOPLASTIN TIME PROLONGED [None]
  - ANTI-THYROID ANTIBODY POSITIVE [None]
  - OFF LABEL USE [None]
  - PROTHROMBIN TIME PROLONGED [None]
